FAERS Safety Report 7971517-8 (Version None)
Quarter: 2011Q4

REPORT INFORMATION
  Report Type: 
  Country: None (occurrence: None)
  Receive Date: 20111212
  Receipt Date: 20111128
  Transmission Date: 20120403
  Serious: Yes (Hospitalization, Other)
  Sender: FDA-Public Use
  Company Number: DE-ELI_LILLY_AND_COMPANY-DE201111007993

PATIENT
  Age: 57 Year
  Sex: Female
  Weight: 82 kg

DRUGS (3)
  1. CYMBALTA [Suspect]
     Dosage: UNK, UNKNOWN
  2. DOMINAL FORTE [Concomitant]
     Dosage: 2400 MG, UNK
     Dates: start: 20110929
  3. MIRTAZAPINE [Concomitant]
     Dosage: UNK
     Dates: start: 20110929

REACTIONS (5)
  - HYPOTENSION [None]
  - SUICIDE ATTEMPT [None]
  - FATIGUE [None]
  - RESPIRATORY FAILURE [None]
  - NAUSEA [None]
